FAERS Safety Report 16775822 (Version 1)
Quarter: 2019Q3

REPORT INFORMATION
  Report Type: Spontaneous
  Country: DE (occurrence: DE)
  Receive Date: 20190905
  Receipt Date: 20190905
  Transmission Date: 20191005
  Serious: Yes (Hospitalization)
  Sender: FDA-Public Use
  Company Number: DE-PFIZER INC-2019376914

PATIENT
  Age: 65 Year
  Sex: Male

DRUGS (2)
  1. METHOTREXATE SODIUM. [Suspect]
     Active Substance: METHOTREXATE SODIUM
     Dosage: 15 MG, WEEKLY
     Route: 048
  2. METHOTREXATE SODIUM. [Suspect]
     Active Substance: METHOTREXATE SODIUM
     Dosage: 15 MG, SINGLE

REACTIONS (12)
  - Myasthenic syndrome [Unknown]
  - Platelet count decreased [Unknown]
  - Prostatic specific antigen increased [Unknown]
  - Metastases to bone [Unknown]
  - Leukopenia [Unknown]
  - General physical health deterioration [Unknown]
  - Off label use [Unknown]
  - Weight decreased [Unknown]
  - Bone marrow disorder [Unknown]
  - Anaemia [Unknown]
  - Hyperhidrosis [Unknown]
  - Petechiae [Unknown]
